FAERS Safety Report 15011649 (Version 1)
Quarter: 2018Q2

REPORT INFORMATION
  Report Type: Spontaneous
  Country: JP (occurrence: JP)
  Receive Date: 20180614
  Receipt Date: 20180614
  Transmission Date: 20180711
  Serious: Yes (Hospitalization, Disabling, Other)
  Sender: FDA-Public Use
  Company Number: JP-GLAXOSMITHKLINE-JP2018JPN081392

PATIENT
  Age: 44 Year
  Sex: Male
  Weight: 73 kg

DRUGS (8)
  1. CYCLOSERINE. [Concomitant]
     Active Substance: CYCLOSERINE
     Indication: TUBERCULOSIS OF CENTRAL NERVOUS SYSTEM
     Dosage: UNK UNK, QD
  2. AVELOX [Concomitant]
     Active Substance: MOXIFLOXACIN HYDROCHLORIDE
     Indication: TUBERCULOSIS OF CENTRAL NERVOUS SYSTEM
     Dosage: UNK UNK, QD
  3. CARBAZOCHROME SULFONATE NA TABLETS [Concomitant]
     Dosage: 30 MG, BID
  4. PYRAMIDE [Concomitant]
     Active Substance: PYRAZINAMIDE
     Indication: TUBERCULOSIS OF CENTRAL NERVOUS SYSTEM
     Dosage: UNK UNK, QOD
  5. SAMTIREL [Suspect]
     Active Substance: ATOVAQUONE
     Indication: TUBERCULOSIS OF CENTRAL NERVOUS SYSTEM
  6. SAMTIREL [Suspect]
     Active Substance: ATOVAQUONE
     Indication: INFECTION PROPHYLAXIS
     Dosage: 10 ML, QOD
     Route: 048
     Dates: start: 20161121
  7. TUBERMIN [Concomitant]
     Active Substance: ETHIONAMIDE
     Indication: TUBERCULOSIS OF CENTRAL NERVOUS SYSTEM
     Dosage: UNK UNK, TID
  8. ISCOTIN (JAPAN) [Concomitant]
     Indication: TUBERCULOSIS OF CENTRAL NERVOUS SYSTEM
     Dosage: UNK UNK, QD

REACTIONS (21)
  - Renal impairment [Unknown]
  - Product use issue [Unknown]
  - Hypothyroidism [Unknown]
  - Condition aggravated [Unknown]
  - Post infection glomerulonephritis [Unknown]
  - Diabetes mellitus [Unknown]
  - Haemorrhage [Unknown]
  - Haematuria [Unknown]
  - Muscle haemorrhage [Unknown]
  - Cellulitis [Unknown]
  - Wound sepsis [Unknown]
  - Nephrotic syndrome [Unknown]
  - Post herpetic neuralgia [Unknown]
  - Tuberculosis of central nervous system [Unknown]
  - Oedema [Unknown]
  - Haemarthrosis [Unknown]
  - Calcinosis [Unknown]
  - Adrenal insufficiency [Unknown]
  - Effusion [Unknown]
  - Myositis ossificans [Unknown]
  - Herpes zoster [Unknown]

NARRATIVE: CASE EVENT DATE: 20170103
